FAERS Safety Report 20789671 (Version 1)
Quarter: 2022Q2

REPORT INFORMATION
  Report Type: Spontaneous
  Country: US (occurrence: US)
  Receive Date: 20220505
  Receipt Date: 20220505
  Transmission Date: 20220720
  Serious: Yes (Death, Life-Threatening, Other)
  Sender: FDA-Public Use
  Company Number: US-AMGEN-USASP2022073278

PATIENT

DRUGS (11)
  1. FILGRASTIM [Suspect]
     Active Substance: FILGRASTIM
     Indication: Prophylaxis
     Dosage: 5 MICROGRAM/KILOGRAM, QD (DAY 5 UNTIL NEUTROPHIL RECOVERY)
     Route: 065
  2. DECITABINE [Suspect]
     Active Substance: DECITABINE
     Indication: Acute myeloid leukaemia refractory
     Dosage: 5 MILLIGRAM/SQ. METER
     Route: 065
  3. DECITABINE [Suspect]
     Active Substance: DECITABINE
     Dosage: 7.5 MILLIGRAM/SQ. METER
     Route: 065
  4. DECITABINE [Suspect]
     Active Substance: DECITABINE
     Dosage: 10 MILLIGRAM/SQ. METER
     Route: 065
  5. DECITABINE [Suspect]
     Active Substance: DECITABINE
     Dosage: 15 MILLIGRAM/SQ. METER
     Route: 065
  6. VORINOSTAT [Suspect]
     Active Substance: VORINOSTAT
     Indication: Acute myeloid leukaemia refractory
     Dosage: 180 MILLIGRAM/SQ. METER, QD
     Route: 065
  7. VORINOSTAT [Suspect]
     Active Substance: VORINOSTAT
     Dosage: 200 MILLIGRAM, BID
     Route: 065
  8. FLUDARABINE [Concomitant]
     Active Substance: FLUDARABINE PHOSPHATE
     Indication: Acute myeloid leukaemia refractory
     Dosage: 30 MILLIGRAM/SQ. METER
  9. METHOTREXATE [Concomitant]
     Active Substance: METHOTREXATE
     Indication: Acute myeloid leukaemia refractory
     Dosage: UNK
  10. HYDROCORTISONE [Concomitant]
     Active Substance: HYDROCORTISONE
     Indication: Acute myeloid leukaemia refractory
     Dosage: UNK
     Route: 037
  11. CYTARABINE [Concomitant]
     Active Substance: CYTARABINE
     Indication: Acute myeloid leukaemia refractory
     Dosage: 2000 MILLIGRAM/SQ. METER

REACTIONS (44)
  - Death [Fatal]
  - Mucormycosis [Fatal]
  - Pericarditis fungal [Fatal]
  - Aspergillus infection [Fatal]
  - Respiratory failure [Fatal]
  - Seizure [Fatal]
  - Cardiac arrest [Fatal]
  - Sinus tachycardia [Unknown]
  - Bone marrow failure [Fatal]
  - Acute myeloid leukaemia [Fatal]
  - Meningitis fungal [Unknown]
  - Candida infection [Unknown]
  - Pneumonia bacterial [Unknown]
  - Gene mutation [Unknown]
  - Hypocalcaemia [Unknown]
  - Hyperglycaemia [Unknown]
  - Hypokalaemia [Unknown]
  - Gamma-glutamyltransferase increased [Unknown]
  - Skin infection [Unknown]
  - Hypotension [Unknown]
  - Sepsis [Unknown]
  - Hypertension [Unknown]
  - Decreased appetite [Unknown]
  - Trichosporon infection [Unknown]
  - Leptotrichia infection [Unknown]
  - Alanine aminotransferase increased [Unknown]
  - Hypophosphataemia [Unknown]
  - Blood bilirubin increased [Unknown]
  - Febrile neutropenia [Unknown]
  - Sinusitis [Unknown]
  - Hypoxia [Unknown]
  - Infestation [Unknown]
  - Infection [Unknown]
  - Catheter site haemorrhage [Unknown]
  - Non-cardiac chest pain [Unknown]
  - Hyponatraemia [Unknown]
  - Aspartate aminotransferase increased [Unknown]
  - Vomiting [Unknown]
  - Nausea [Unknown]
  - Pyrexia [Unknown]
  - Dyspnoea [Unknown]
  - Epistaxis [Unknown]
  - Rash maculo-papular [Unknown]
  - Headache [Unknown]
